FAERS Safety Report 22312691 (Version 1)
Quarter: 2023Q2

REPORT INFORMATION
  Report Type: Spontaneous
  Country: DE (occurrence: DE)
  Receive Date: 20230512
  Receipt Date: 20230512
  Transmission Date: 20230721
  Serious: Yes (Other)
  Sender: FDA-Public Use
  Company Number: DE-PFIZER INC-202300173110

PATIENT
  Age: 23 Year
  Sex: Male

DRUGS (5)
  1. RITUXIMAB [Suspect]
     Active Substance: RITUXIMAB
     Indication: Product used for unknown indication
     Dosage: 1000 MG, SINGLE
     Route: 042
     Dates: start: 20211023, end: 20211023
  2. RITUXIMAB [Suspect]
     Active Substance: RITUXIMAB
     Dosage: 1000 MG, SINGLE
     Route: 042
     Dates: start: 202202, end: 202202
  3. RITUXIMAB [Suspect]
     Active Substance: RITUXIMAB
     Dosage: 500 MG
     Route: 042
     Dates: start: 202203, end: 202203
  4. RITUXIMAB [Suspect]
     Active Substance: RITUXIMAB
     Dosage: 2X500 MG
     Route: 042
     Dates: start: 202208, end: 202208
  5. RITUXIMAB [Suspect]
     Active Substance: RITUXIMAB
     Dosage: 300 MG, SINGLE
     Route: 042
     Dates: start: 20211109, end: 20211109

REACTIONS (4)
  - Pharyngeal swelling [Unknown]
  - Dizziness [Unknown]
  - Chills [Unknown]
  - Flushing [Unknown]

NARRATIVE: CASE EVENT DATE: 20211109
